FAERS Safety Report 23185960 (Version 1)
Quarter: 2023Q4

REPORT INFORMATION
  Report Type: Spontaneous
  Country: GB (occurrence: GB)
  Receive Date: 20231115
  Receipt Date: 20231115
  Transmission Date: 20240109
  Serious: Yes (Other)
  Sender: FDA-Public Use
  Company Number: None

PATIENT

DRUGS (11)
  1. MIRTAZAPINE [Suspect]
     Active Substance: MIRTAZAPINE
     Indication: Product used for unknown indication
     Dosage: 15 MILLIGRAM
     Route: 048
     Dates: start: 20230905
  2. Alginate [Concomitant]
     Dosage: UNK, Q4D (10ML-20ML)
     Route: 065
     Dates: start: 20231002, end: 20231030
  3. RIVASTIGMINE [Concomitant]
     Active Substance: RIVASTIGMINE
     Dosage: 1 DOSAGE FORM, QD (APPLY ONE PATCH EVERY TWENTY FOUR HOURS)
     Route: 065
     Dates: start: 20230703
  4. ATORVASTATIN [Concomitant]
     Active Substance: ATORVASTATIN
     Indication: Blood cholesterol increased
     Dosage: 1 DOSAGE FORM, QD (TAKE ONE TABLET ONCE A DAY TO HELP LOWER CHOLES...  )
     Route: 065
     Dates: start: 20230314
  5. CLONAZEPAM [Concomitant]
     Active Substance: CLONAZEPAM
     Dosage: 1 DOSAGE FORM, QD (AT NIGHT, CAN BE INCREASED EVERY 3DAYS TO A...  )
     Route: 065
     Dates: start: 20230314
  6. CLOPIDOGREL [Concomitant]
     Active Substance: CLOPIDOGREL BISULFATE
     Dosage: 1 DOSAGE FORM
     Route: 065
     Dates: start: 20230314
  7. CYCLIZINE [Concomitant]
     Active Substance: CYCLIZINE
     Dosage: UNK, TID (TAKE ONE 30 MINUTES BEFORE MEALS TO HELP WITH N..)
     Route: 065
     Dates: start: 20231002, end: 20231007
  8. DOCUSATE SODIUM [Concomitant]
     Active Substance: DOCUSATE SODIUM
     Indication: Constipation
     Dosage: 1 DOSAGE FORM, BID (TAKE 1-2 TABS)
     Route: 065
     Dates: start: 20230314
  9. LANSOPRAZOLE [Concomitant]
     Active Substance: LANSOPRAZOLE
     Dosage: 15 MILLIGRAM, QD (TAKE ONE DAILY IN ADDITION TO 15MG IN BLISTER PACK )
     Route: 065
     Dates: start: 20230314
  10. LATANOPROST [Concomitant]
     Active Substance: LATANOPROST
     Dosage: 1 DROP, (TO EACH EYE )
     Route: 065
     Dates: start: 20230817
  11. POLYETHYLENE GLYCOL 3350\POTASSIUM CHLORIDE\SODIUM BICARBONATE\SODIUM [Concomitant]
     Active Substance: POLYETHYLENE GLYCOL 3350\POTASSIUM CHLORIDE\SODIUM BICARBONATE\SODIUM CHLORIDE
     Indication: Constipation
     Dosage: 1 DOSAGE FORM, BID (TWO IN AM AND TWO IN PM IF NEEDED)
     Route: 065
     Dates: start: 20230314

REACTIONS (2)
  - Confusional state [Recovered/Resolved]
  - Disorientation [Unknown]
